FAERS Safety Report 6725592-9 (Version None)
Quarter: 2010Q2

REPORT INFORMATION
  Report Type: 
  Country: None (occurrence: None)
  Receive Date: 20100514
  Receipt Date: 20100503
  Transmission Date: 20101027
  Serious: Yes (Hospitalization, Other)
  Sender: FDA-Public Use
  Company Number: US-SANOFI-AVENTIS-2010SA025914

PATIENT
  Age: 74 Year
  Sex: Male

DRUGS (2)
  1. PLAVIX [Suspect]
     Indication: STENT PLACEMENT
     Route: 048
     Dates: start: 20030501
  2. ASPIRIN [Suspect]
     Route: 048
     Dates: start: 20030501

REACTIONS (8)
  - BLOOD AMYLASE INCREASED [None]
  - COLLAPSE OF LUNG [None]
  - CORONARY ARTERY OCCLUSION [None]
  - DEVICE OCCLUSION [None]
  - LIPASE INCREASED [None]
  - PAIN [None]
  - PANCREATITIS [None]
  - POST PROCEDURAL HAEMORRHAGE [None]
